FAERS Safety Report 18507510 (Version 6)
Quarter: 2021Q1

REPORT INFORMATION
  Report Type: Spontaneous
  Country: US (occurrence: US)
  Receive Date: 20201116
  Receipt Date: 20210209
  Transmission Date: 20210419
  Serious: Yes (Hospitalization, Other)
  Sender: FDA-Public Use
  Company Number: US-PFIZER INC-2020447817

PATIENT
  Age: 69 Year
  Sex: Male

DRUGS (4)
  1. MEKTOVI [Interacting]
     Active Substance: BINIMETINIB
     Indication: MALIGNANT MELANOMA
     Dosage: 45 MG, 2X/DAY
     Dates: start: 20201023
  2. MEKTOVI [Interacting]
     Active Substance: BINIMETINIB
     Dosage: 30 MG, 2X/DAY (2 15 MG OF MEKTOVI TWICE DAILY )
  3. BRAFTOVI [Suspect]
     Active Substance: ENCORAFENIB
     Indication: MALIGNANT MELANOMA
     Dosage: 450 MG, 1X/DAY
     Dates: start: 20201023
  4. BRAFTOVI [Interacting]
     Active Substance: ENCORAFENIB
     Dosage: 300 MG, 1X/DAY (4 75MG BRAFTOVI ONCE DAILY)

REACTIONS (9)
  - Fatigue [Unknown]
  - Hypersomnia [Unknown]
  - Gait disturbance [Unknown]
  - Drug interaction [Unknown]
  - Pyrexia [Unknown]
  - Urosepsis [Unknown]
  - Blindness unilateral [Unknown]
  - Nausea [Unknown]
  - Dysphonia [Unknown]
